FAERS Safety Report 7367052-0 (Version None)
Quarter: 2011Q1

REPORT INFORMATION
  Report Type: 
  Country: None (occurrence: None)
  Receive Date: 20110311
  Receipt Date: 20110224
  Transmission Date: 20110831
  Serious: Yes (Life-Threatening, Disabling)
  Sender: FDA-Public Use
  Company Number: AUR-APL-2011-00731

PATIENT
  Age: 78 Year
  Sex: Male

DRUGS (7)
  1. SIMVASTATIN [Suspect]
     Indication: HYPERCHOLESTEROLAEMIA
  2. AMLODIPINE BESILATE [Concomitant]
  3. NAPROXEN [Concomitant]
  4. ATORVASTATIN CALCIUM [Suspect]
     Indication: HYPERCHOLESTEROLAEMIA
     Dosage: 10MG-ORAL
     Route: 048
  5. OMEPRAZOLE [Concomitant]
  6. ALLOPURINOL [Concomitant]
  7. LEVOTHYROXINE SODIUM [Concomitant]

REACTIONS (3)
  - PULMONARY FIBROSIS [None]
  - BLOOD IMMUNOGLOBULIN E INCREASED [None]
  - INTERSTITIAL LUNG DISEASE [None]
